FAERS Safety Report 7359736-5 (Version None)
Quarter: 2011Q1

REPORT INFORMATION
  Report Type: 
  Country: None (occurrence: None)
  Receive Date: 20110317
  Receipt Date: 20101007
  Transmission Date: 20110831
  Serious: Yes (Hospitalization, Other)
  Sender: FDA-Public Use
  Company Number: US-BAYER-201013957NA

PATIENT
  Sex: Female

DRUGS (10)
  1. LIPITOR [Concomitant]
  2. CLONAZEPAM [Concomitant]
  3. YAZ [Suspect]
     Indication: PRODUCT USED FOR UNKNOWN INDICATION
     Route: 048
     Dates: start: 20071001, end: 20081201
  4. AMOXICILLIN [Concomitant]
  5. FAMOTIDINE [Concomitant]
  6. CELEBREX [Concomitant]
     Dosage: UNK
     Dates: start: 20061101
  7. VALTREX [Concomitant]
  8. YASMIN [Suspect]
     Indication: PRODUCT USED FOR UNKNOWN INDICATION
     Route: 048
  9. ZOLPIDEM TARTRATE [Concomitant]
  10. AMBIEN [Concomitant]

REACTIONS (5)
  - PHLEBITIS SUPERFICIAL [None]
  - CEREBROVASCULAR ACCIDENT [None]
  - ANXIETY [None]
  - DEEP VEIN THROMBOSIS [None]
  - THROMBOSIS [None]
